FAERS Safety Report 9010317 (Version 1)
Quarter: 2013Q1

REPORT INFORMATION
  Report Type: Spontaneous
  Country: IT (occurrence: IT)
  Receive Date: 20130110
  Receipt Date: 20130110
  Transmission Date: 20140127
  Serious: Yes (Hospitalization)
  Sender: FDA-Public Use
  Company Number: IT-BAYER-2013-003113

PATIENT
  Age: 77 Year
  Sex: Male

DRUGS (1)
  1. CARDIOASPIRIN [Suspect]
     Indication: PLATELET AGGREGATION INHIBITION
     Dosage: 100 MG, QD
     Route: 048
     Dates: start: 20070101, end: 20120617

REACTIONS (3)
  - Asthenia [Recovering/Resolving]
  - Hypokinesia [Recovering/Resolving]
  - Cerebral haemorrhage [Recovering/Resolving]
